FAERS Safety Report 9264976 (Version 2)
Quarter: 2013Q2

REPORT INFORMATION
  Report Type: Report from Study
  Country: DE (occurrence: DE)
  Receive Date: 20130501
  Receipt Date: 20130507
  Transmission Date: 20140414
  Serious: Yes (Hospitalization)
  Sender: FDA-Public Use
  Company Number: DE-ROCHE-1216980

PATIENT
  Age: 41 Year
  Sex: Female
  Weight: 77 kg

DRUGS (6)
  1. TRASTUZUMAB [Suspect]
     Indication: BREAST CANCER
     Dosage: LOADING DOSE
     Route: 042
     Dates: start: 20130221
  2. TRASTUZUMAB [Suspect]
     Dosage: MAINTAINANCE DOSE. LAST DOSE PRIOR TO SAE 04/APR/2013
     Route: 042
     Dates: start: 20130314
  3. PACLITAXEL [Suspect]
     Indication: BREAST CANCER
     Route: 042
     Dates: start: 20130221, end: 20130418
  4. PACLITAXEL [Suspect]
     Route: 042
     Dates: start: 20130425
  5. PERTUZUMAB [Suspect]
     Indication: BREAST CANCER
     Dosage: LOADING DOSE
     Route: 042
     Dates: start: 20130221
  6. PERTUZUMAB [Suspect]
     Dosage: MAINTENANCE DOSE, LAST DOSE PRIOR TO SAE 04/APR/2013
     Route: 042

REACTIONS (1)
  - Influenza like illness [Recovered/Resolved]
